FAERS Safety Report 25185107 (Version 1)
Quarter: 2025Q2

REPORT INFORMATION
  Report Type: Spontaneous
  Country: MY (occurrence: MY)
  Receive Date: 20250410
  Receipt Date: 20250410
  Transmission Date: 20250716
  Serious: Yes (Hospitalization, Other)
  Sender: ABBVIE
  Company Number: MY-ABBVIE-6202849

PATIENT
  Age: 68 Year
  Sex: Male
  Weight: 60 kg

DRUGS (3)
  1. RINVOQ [Suspect]
     Active Substance: UPADACITINIB
     Indication: Eczema
     Dosage: FORM STRENGTH: 30 MG, LAST ADMIN DATE- MAR 25
     Route: 048
     Dates: start: 20250306, end: 20250326
  2. RINVOQ [Suspect]
     Active Substance: UPADACITINIB
     Indication: Eczema
     Route: 048
     Dates: start: 20250330
  3. LEVOTHYROXINE [Concomitant]
     Active Substance: LEVOTHYROXINE
     Indication: Hypothyroidism
     Route: 048
     Dates: start: 20250313

REACTIONS (21)
  - Haemoglobin decreased [Recovering/Resolving]
  - Muscle spasms [Recovered/Resolved]
  - Dehydration [Unknown]
  - Atrial fibrillation [Recovered/Resolved]
  - Strongyloidiasis [Unknown]
  - Glucocorticoid deficiency [Unknown]
  - Pneumonia [Unknown]
  - Pulmonary embolism [Unknown]
  - Electrolyte imbalance [Recovering/Resolving]
  - White blood cell count increased [Unknown]
  - Pleural effusion [Unknown]
  - Abdominal pain [Recovered/Resolved]
  - C-reactive protein increased [Recovering/Resolving]
  - Diarrhoea [Recovered/Resolved]
  - Blood pressure abnormal [Unknown]
  - Hypotension [Unknown]
  - Hyperparathyroidism [Unknown]
  - Hilar lymphadenopathy [Unknown]
  - Gastroenteritis [Unknown]
  - Pulmonary embolism [Recovering/Resolving]
  - Diarrhoea [Recovered/Resolved]

NARRATIVE: CASE EVENT DATE: 20250101
